FAERS Safety Report 6041771-0 (Version None)
Quarter: 2009Q1

REPORT INFORMATION
  Report Type: 
  Country: None (occurrence: None)
  Receive Date: 20090116
  Receipt Date: 20090106
  Transmission Date: 20090719
  Serious: Yes (Other)
  Sender: FDA-Public Use
  Company Number: JP-PFIZER INC-2008151507

PATIENT

DRUGS (1)
  1. ALDACTONE [Suspect]
     Indication: CARDIAC FAILURE CONGESTIVE
     Dosage: 25 MG, 3X/DAY
     Dates: start: 20080604, end: 20081105

REACTIONS (2)
  - EOSINOPHIL COUNT INCREASED [None]
  - RASH [None]
